FAERS Safety Report 12324958 (Version 1)
Quarter: 2016Q2

REPORT INFORMATION
  Report Type: Spontaneous
  Country: US (occurrence: US)
  Receive Date: 20160502
  Receipt Date: 20160502
  Transmission Date: 20160815
  Serious: No
  Sender: FDA-Public Use
  Company Number: US-AKRIMAX-TIR-2016-0430

PATIENT
  Age: 56 Year
  Sex: Female
  Weight: 49.94 kg

DRUGS (1)
  1. TIROSINT [Suspect]
     Active Substance: LEVOTHYROXINE SODIUM
     Indication: HYPOTHYROIDISM
     Dosage: ONCE DAILY
     Route: 048
     Dates: start: 20160328, end: 20160403

REACTIONS (4)
  - Hypertonic bladder [Recovered/Resolved]
  - Paraesthesia [Recovered/Resolved]
  - Drug level above therapeutic [Unknown]
  - Pollakiuria [Recovered/Resolved]

NARRATIVE: CASE EVENT DATE: 201603
